FAERS Safety Report 10673921 (Version 1)
Quarter: 2014Q4

REPORT INFORMATION
  Report Type: Spontaneous
  Country: US (occurrence: None)
  Receive Date: 20141223
  Receipt Date: 20141223
  Transmission Date: 20150529
  Serious: Yes (Disabling, Other)
  Sender: FDA-Public Use
  Company Number: None

PATIENT
  Age: 62 Year
  Sex: Female
  Weight: 107.96 kg

DRUGS (18)
  1. ADVAIR HFA [Concomitant]
     Active Substance: FLUTICASONE PROPIONATE\SALMETEROL XINAFOATE
  2. DIOVAN [Concomitant]
     Active Substance: VALSARTAN
  3. DULCOLAX CALCIUM [Concomitant]
  4. PREVACID [Concomitant]
     Active Substance: LANSOPRAZOLE
  5. NOVOLIN RINSULIN [Concomitant]
  6. BENADRYL CREAMS [Concomitant]
  7. NITROFURANTOIN MONO HD 100MG CAP/MACROBID CAPSULES [Suspect]
     Active Substance: NITROFURANTOIN MONOHYDRATE
     Indication: URINARY TRACT INFECTION
     Route: 048
     Dates: start: 20141207, end: 20141208
  8. ADVIL [Concomitant]
     Active Substance: IBUPROFEN
  9. NIPHIDIPINE [Concomitant]
  10. PROPANOLOL [Concomitant]
     Active Substance: PROPRANOLOL HYDROCHLORIDE
  11. ZYRTEC [Concomitant]
     Active Substance: CETIRIZINE HYDROCHLORIDE
  12. VITAMIN D3 [Concomitant]
     Active Substance: CHOLECALCIFEROL
  13. TYLENOL [Concomitant]
     Active Substance: ACETAMINOPHEN
  14. FLONASE [Concomitant]
     Active Substance: FLUTICASONE PROPIONATE
  15. NOVOLIN N INSULIN [Concomitant]
  16. XALATAN [Concomitant]
     Active Substance: LATANOPROST
  17. SYNTHROID [Concomitant]
     Active Substance: LEVOTHYROXINE SODIUM
  18. HCTZ [Concomitant]
     Active Substance: HYDROCHLOROTHIAZIDE

REACTIONS (15)
  - Hypoaesthesia [None]
  - Faeces discoloured [None]
  - Dysstasia [None]
  - Hypotonia [None]
  - Middle insomnia [None]
  - Wheezing [None]
  - Asthenia [None]
  - Abdominal pain upper [None]
  - Nervousness [None]
  - Myalgia [None]
  - Fatigue [None]
  - Monoparesis [None]
  - Burning sensation [None]
  - Muscle disorder [None]
  - Activities of daily living impaired [None]

NARRATIVE: CASE EVENT DATE: 20141207
